FAERS Safety Report 13358798 (Version 1)
Quarter: 2017Q1

REPORT INFORMATION
  Report Type: Spontaneous
  Country: US (occurrence: US)
  Receive Date: 20170322
  Receipt Date: 20170322
  Transmission Date: 20170429
  Serious: No
  Sender: FDA-Public Use
  Company Number: US-009507513-1703USA006918

PATIENT
  Sex: Male

DRUGS (2)
  1. VENTOLIN [Concomitant]
     Active Substance: ALBUTEROL SULFATE
     Dosage: BID (ONCE IN THE MORNING AND ONCE BEFORE HIS SECOND ASMANEX HFA DOSE)
  2. ASMANEX HFA [Suspect]
     Active Substance: MOMETASONE FUROATE
     Indication: ASTHMA
     Dosage: 1 DF, BID (ONE INHALATION IN THE MORNING AND ONE AT THE NIGHT)
     Route: 055

REACTIONS (1)
  - Cataract [Unknown]
